FAERS Safety Report 9748342 (Version 1)
Quarter: 2013Q4

REPORT INFORMATION
  Report Type: Spontaneous
  Country: IT (occurrence: IT)
  Receive Date: 20131212
  Receipt Date: 20131212
  Transmission Date: 20140711
  Serious: Yes (Other)
  Sender: FDA-Public Use
  Company Number: PHHY2013IT145187

PATIENT
  Sex: Male

DRUGS (1)
  1. ZOMETA [Suspect]
     Indication: PROSTATE CANCER METASTATIC
     Dosage: 4 MG, CYCLIC (1 VIAL EVERY 28 DAYS)
     Route: 042
     Dates: start: 20110507, end: 20120504

REACTIONS (1)
  - Osteonecrosis of jaw [Not Recovered/Not Resolved]
